FAERS Safety Report 7755656-2 (Version None)
Quarter: 2011Q3

REPORT INFORMATION
  Report Type: 
  Country: None (occurrence: None)
  Receive Date: 20110915
  Receipt Date: 20110915
  Transmission Date: 20111222
  Serious: Yes (Hospitalization, Other)
  Sender: FDA-Public Use
  Company Number: None

PATIENT
  Sex: Female
  Weight: 71.6683 kg

DRUGS (1)
  1. CIPROFLOXACIN [Suspect]
     Indication: ENTERITIS
     Dosage: ? 3X PER DAY BY MOUTH
     Route: 048
     Dates: start: 20110515, end: 20110525

REACTIONS (8)
  - LIP SWELLING [None]
  - ABDOMINAL PAIN UPPER [None]
  - PERINEAL ERYTHEMA [None]
  - DYSPHONIA [None]
  - VAGINAL DISCHARGE [None]
  - ASTHENIA [None]
  - FUNGAL INFECTION [None]
  - SWELLING [None]
